FAERS Safety Report 10881899 (Version 1)
Quarter: 2015Q1

REPORT INFORMATION
  Report Type: Spontaneous
  Country: US (occurrence: None)
  Receive Date: 20150227
  Receipt Date: 20150227
  Transmission Date: 20150721
  Serious: Yes (Hospitalization)
  Sender: FDA-Public Use
  Company Number: None

PATIENT
  Age: 49 Year
  Sex: Male

DRUGS (1)
  1. SUTENT [Suspect]
     Active Substance: SUNITINIB MALATE
     Indication: SOFT TISSUE SARCOMA
     Dosage: 1QD
     Route: 048
     Dates: start: 20141231, end: 20150218

REACTIONS (2)
  - General physical health deterioration [None]
  - Therapy cessation [None]

NARRATIVE: CASE EVENT DATE: 20150218
